FAERS Safety Report 15385649 (Version 1)
Quarter: 2018Q3

REPORT INFORMATION
  Report Type: Spontaneous
  Country: DE (occurrence: DE)
  Receive Date: 20180914
  Receipt Date: 20180914
  Transmission Date: 20181010
  Serious: Yes (Congenital Anomaly, Other)
  Sender: FDA-Public Use
  Company Number: DE-TORRENT-00009930

PATIENT
  Sex: Male
  Weight: 3 kg

DRUGS (3)
  1. CARBAMAZEPIN [Concomitant]
     Active Substance: CARBAMAZEPINE
     Indication: EPILEPSY
     Dosage: 800 [MG/D ]/ SEIT JAHREN
     Route: 064
     Dates: start: 20170417, end: 20170612
  2. MIRTAZAPIN [Concomitant]
     Active Substance: MIRTAZAPINE
     Indication: RESTLESSNESS
     Dosage: 15 [MG/D ]
     Route: 064
     Dates: start: 20170425, end: 20170609
  3. LEVETIRACETAM. [Suspect]
     Active Substance: LEVETIRACETAM
     Indication: EPILEPSY
     Dosage: 2000 [MG/D ]/ INITIAL 1500 MG/D, DOSAGE INCREASE TO 2000 MG/D
     Route: 064
     Dates: start: 20170612, end: 20180129

REACTIONS (4)
  - Pyelocaliectasis [Unknown]
  - Cryptorchism [Unknown]
  - Foetal exposure during pregnancy [Unknown]
  - Polydactyly [Not Recovered/Not Resolved]

NARRATIVE: CASE EVENT DATE: 20180129
